FAERS Safety Report 7580263-4 (Version None)
Quarter: 2011Q2

REPORT INFORMATION
  Report Type: 
  Country: None (occurrence: None)
  Receive Date: 20110629
  Receipt Date: 20110628
  Transmission Date: 20111010
  Serious: Yes (Other)
  Sender: FDA-Public Use
  Company Number: IT-SANOFI-AVENTIS-2011SA040457

PATIENT
  Sex: Male

DRUGS (1)
  1. ALFUZOSIN HCL [Suspect]

REACTIONS (1)
  - TABLET PHYSICAL ISSUE [None]
